FAERS Safety Report 5061277-5 (Version None)
Quarter: 2006Q3

REPORT INFORMATION
  Report Type: 
  Country: None (occurrence: None)
  Receive Date: 20060721
  Receipt Date: 20060721
  Transmission Date: 20061208
  Serious: Yes (Hospitalization)
  Sender: FDA-Public Use
  Company Number: None

PATIENT
  Sex: Female
  Weight: 52.1637 kg

DRUGS (1)
  1. PRILOSEC OTC [Suspect]
     Indication: DYSPEPSIA
     Dosage: 1 TABLET ONCE/DAY ORAL
     Route: 048
     Dates: start: 20060708, end: 20060710

REACTIONS (2)
  - DRUG PRESCRIBING ERROR [None]
  - REACTION TO DRUG EXCIPIENTS [None]
